FAERS Safety Report 9615689 (Version 1)
Quarter: 2013Q4

REPORT INFORMATION
  Report Type: Spontaneous
  Country: US (occurrence: US)
  Receive Date: 20131011
  Receipt Date: 20131011
  Transmission Date: 20140711
  Serious: No
  Sender: FDA-Public Use
  Company Number: US-PURDUE-USA-2013-0099171

PATIENT
  Age: 64 Year
  Sex: Male

DRUGS (2)
  1. BUTRANS [Suspect]
     Indication: RHEUMATOID ARTHRITIS
     Dosage: 10 MCG/HR, WEEKLY
     Route: 062
     Dates: start: 201103
  2. BUTRANS [Suspect]
     Indication: OSTEOARTHRITIS

REACTIONS (4)
  - Malaise [Unknown]
  - Hyperhidrosis [Recovered/Resolved]
  - Nausea [Recovered/Resolved]
  - Dizziness [Recovered/Resolved]
